FAERS Safety Report 6757589-7 (Version None)
Quarter: 2010Q2

REPORT INFORMATION
  Report Type: 
  Country: None (occurrence: None)
  Receive Date: 20100607
  Receipt Date: 20100526
  Transmission Date: 20101027
  Serious: Yes (Hospitalization)
  Sender: FDA-Public Use
  Company Number: FR-JNJFOC-20090809309

PATIENT
  Age: 34 Year
  Sex: Female

DRUGS (5)
  1. INFLIXIMAB [Suspect]
     Indication: CROHN'S DISEASE
     Route: 042
     Dates: start: 20080423
  2. NEXIUM [Concomitant]
  3. SOLU-MEDROL [Concomitant]
     Indication: PAIN
     Dosage: 8TH-20TH
  4. OLICLINOMEL N4-440 E [Concomitant]
     Indication: MEDICAL DIET
  5. MORPHINE [Concomitant]
     Indication: PAIN

REACTIONS (2)
  - ANAEMIA [None]
  - GENERAL PHYSICAL HEALTH DETERIORATION [None]
